FAERS Safety Report 17469466 (Version 1)
Quarter: 2020Q1

REPORT INFORMATION
  Report Type: Spontaneous
  Country: US (occurrence: US)
  Receive Date: 20200227
  Receipt Date: 20200227
  Transmission Date: 20200409
  Serious: Yes (Death, Other)
  Sender: FDA-Public Use
  Company Number: US-AMGEN-USASP2020028582

PATIENT
  Age: 33 Year
  Sex: Female

DRUGS (3)
  1. FILGRASTIM [Suspect]
     Active Substance: FILGRASTIM
     Indication: PRODUCT USED FOR UNKNOWN INDICATION
     Dosage: UNK
     Route: 065
  2. EMAPALUMAB [Concomitant]
     Active Substance: EMAPALUMAB
     Indication: PRODUCT USED FOR UNKNOWN INDICATION
     Dosage: UNK
     Route: 065
  3. ETOPOSIDE. [Concomitant]
     Active Substance: ETOPOSIDE
     Indication: HAEMOPHAGOCYTIC LYMPHOHISTIOCYTOSIS
     Dosage: UNK
     Route: 065

REACTIONS (10)
  - Blood fibrinogen decreased [Unknown]
  - Sepsis [Fatal]
  - Pancytopenia [Unknown]
  - Multiple organ dysfunction syndrome [Fatal]
  - Liver function test increased [Unknown]
  - Serum ferritin increased [Unknown]
  - Jaundice cholestatic [Unknown]
  - Pyrexia [Unknown]
  - Interleukin-2 receptor increased [Unknown]
  - Haemodynamic instability [Unknown]
